FAERS Safety Report 22140414 (Version 1)
Quarter: 2023Q1

REPORT INFORMATION
  Report Type: Spontaneous
  Country: US (occurrence: None)
  Receive Date: 20230324
  Receipt Date: 20230324
  Transmission Date: 20230418
  Serious: No
  Sender: FDA-Public Use
  Company Number: None

PATIENT
  Age: 45 Year
  Sex: Female
  Weight: 99 kg

DRUGS (11)
  1. ACETAMINOPHEN [Suspect]
     Active Substance: ACETAMINOPHEN
     Indication: Back pain
     Dosage: OTHER QUANTITY : 2 CAPSULE(S);?FREQUENCY : EVERY 6 HOURS;?
     Route: 048
     Dates: start: 20230321, end: 20230322
  2. DIETARY SUPPLEMENT [Suspect]
     Active Substance: DIETARY SUPPLEMENT
     Dosage: OTHER QUANTITY : 1 1 BAR;?OTHER FREQUENCY : ONCE OR TWICE A DA;?
     Route: 048
     Dates: start: 20230315, end: 20230323
  3. EPINEPHRINE [Concomitant]
     Active Substance: EPINEPHRINE
  4. BANOPHEN [Concomitant]
     Active Substance: DIPHENHYDRAMINE HYDROCHLORIDE
  5. Iron slow release dietary supplement [Concomitant]
  6. Sanar Naturals Collagen Wrinkle Formula Dietary Supplement [Concomitant]
  7. VITAMIN C [Concomitant]
     Active Substance: ASCORBIC ACID
  8. VITAMIN E [Concomitant]
     Active Substance: .ALPHA.-TOCOPHEROL
  9. COLLAGEN HYDROLYSATE [Concomitant]
  10. GELATIN [Concomitant]
     Active Substance: GELATIN
  11. DIETARY SUPPLEMENT [Concomitant]
     Active Substance: DIETARY SUPPLEMENT

REACTIONS (6)
  - Abdominal pain upper [None]
  - Muscle spasms [None]
  - Constipation [None]
  - Thrombosis [None]
  - Insomnia [None]
  - Back pain [None]

NARRATIVE: CASE EVENT DATE: 20230322
